FAERS Safety Report 26151805 (Version 1)
Quarter: 2025Q4

REPORT INFORMATION
  Report Type: Spontaneous
  Country: CH (occurrence: CH)
  Receive Date: 20251214
  Receipt Date: 20251214
  Transmission Date: 20260117
  Serious: Yes (Other)
  Sender: MERCK SHARP & DOHME LLC
  Company Number: None

PATIENT
  Age: 71 Year
  Sex: Female
  Weight: 51 kg

DRUGS (3)
  1. KEYTRUDA [Interacting]
     Active Substance: PEMBROLIZUMAB
     Indication: Lung adenocarcinoma stage IV
     Dosage: RECEIVED A 2ND DOSE ON 10/28/2025, WHICH WAS AFTER THE REPORTED ADVERSE EFFECT.  ?2ND DOSE WELL T...
     Route: 042
     Dates: start: 20251007
  2. PEMETREXED [Interacting]
     Active Substance: PEMETREXED
     Indication: Lung adenocarcinoma stage IV
     Dosage: RECEIVED 2ND DOSE ON 10/28/2025, REDUCED DOSE, I.E., 680 MG, WELL TOLERATED.
     Route: 042
     Dates: start: 20251007
  3. CARBOPLATIN [Interacting]
     Active Substance: CARBOPLATIN
     Indication: Lung adenocarcinoma stage IV
     Dosage: RECEIVED 2ND DOSE ON 10/28/2025, REDUCED DOSE, I.E., 500 MG, WELL TOLERATED.
     Route: 042
     Dates: start: 20251007

REACTIONS (3)
  - Cytokine release syndrome [Recovered/Resolved]
  - Febrile neutropenia [Recovered/Resolved]
  - Herpes simplex [Recovered/Resolved]

NARRATIVE: CASE EVENT DATE: 20251010
